FAERS Safety Report 9165842 (Version 1)
Quarter: 2013Q1

REPORT INFORMATION
  Report Type: Report from Study
  Country: US (occurrence: US)
  Receive Date: 20130315
  Receipt Date: 20130315
  Transmission Date: 20140127
  Serious: Yes (Life-Threatening, Hospitalization, Other)
  Sender: FDA-Public Use
  Company Number: US-ABBOTT-13P-163-1061962-00

PATIENT
  Sex: Female
  Weight: 67.19 kg

DRUGS (18)
  1. HUMIRA [Suspect]
     Indication: RHEUMATOID ARTHRITIS
  2. ANTIBIOTICS [Suspect]
     Indication: INFECTION
  3. PREDNISONE [Suspect]
     Indication: RHEUMATOID ARTHRITIS
     Dosage: 30-40 MG
  4. METHOTREXATE [Concomitant]
     Indication: RHEUMATOID ARTHRITIS
     Dosage: ONE DOSE
  5. KLOR-CON [Concomitant]
     Indication: ELECTROLYTE SUBSTITUTION THERAPY
  6. PRILOSEC [Concomitant]
     Indication: GASTROOESOPHAGEAL REFLUX DISEASE
  7. HYDROCHLOROTHIAZIDE [Concomitant]
     Indication: HYPERTENSION
  8. NORVASC [Concomitant]
     Indication: HYPERTENSION
  9. PREDNISONE [Concomitant]
     Indication: RHEUMATOID ARTHRITIS
  10. BABY ASPIRIN [Concomitant]
     Indication: PRODUCT USED FOR UNKNOWN INDICATION
  11. COREG [Concomitant]
     Indication: HYPERTENSION
  12. FOLIC ACID [Concomitant]
     Indication: VITAMIN SUPPLEMENTATION
  13. FENOFIBRATE [Concomitant]
     Indication: BLOOD CHOLESTEROL INCREASED
  14. IRON [Concomitant]
     Indication: MINERAL SUPPLEMENTATION
  15. FERROUS SULFATE [Concomitant]
     Indication: MINERAL SUPPLEMENTATION
  16. COZAAR [Concomitant]
     Indication: HYPERTENSION
  17. LIPITOR [Concomitant]
     Indication: BLOOD CHOLESTEROL INCREASED
  18. VITAMIN C [Concomitant]
     Indication: VITAMIN SUPPLEMENTATION

REACTIONS (10)
  - Blood pressure decreased [Recovered/Resolved]
  - White blood cell count decreased [Unknown]
  - Felty^s syndrome [Not Recovered/Not Resolved]
  - Sepsis [Recovered/Resolved]
  - Loss of consciousness [Recovered/Resolved]
  - Peripheral arterial occlusive disease [Recovered/Resolved]
  - Infection [Recovered/Resolved]
  - Rheumatoid arthritis [Recovered/Resolved]
  - Diabetes mellitus [Not Recovered/Not Resolved]
  - Malaise [Recovered/Resolved]
